FAERS Safety Report 20880949 (Version 1)
Quarter: 2022Q2

REPORT INFORMATION
  Report Type: Spontaneous
  Country: US (occurrence: US)
  Receive Date: 20220526
  Receipt Date: 20220526
  Transmission Date: 20220720
  Serious: No
  Sender: FDA-Public Use
  Company Number: US-RADIUS HEALTH INC.-2022US000542

PATIENT
  Age: 63 Year
  Sex: Male

DRUGS (3)
  1. TYMLOS [Suspect]
     Active Substance: ABALOPARATIDE
     Indication: Fracture
     Dosage: 80 MICROGRAM, QD
     Route: 058
     Dates: start: 20211228
  2. TYMLOS [Suspect]
     Active Substance: ABALOPARATIDE
     Dosage: DECREASED TO 20 MCG QD
     Route: 058
  3. NEORAL [Concomitant]
     Active Substance: CYCLOSPORINE
     Indication: Product used for unknown indication

REACTIONS (7)
  - Neck pain [Recovered/Resolved]
  - Back pain [Recovered/Resolved]
  - Heart rate increased [Unknown]
  - Intentional product misuse [Not Recovered/Not Resolved]
  - Product use in unapproved indication [Not Recovered/Not Resolved]
  - Wrong technique in product usage process [Unknown]
  - Off label use [Unknown]

NARRATIVE: CASE EVENT DATE: 20211228
